FAERS Safety Report 14690574 (Version 1)
Quarter: 2018Q1

REPORT INFORMATION
  Report Type: Spontaneous
  Country: US (occurrence: US)
  Receive Date: 20180328
  Receipt Date: 20180328
  Transmission Date: 20180509
  Serious: No
  Sender: FDA-Public Use
  Company Number: US-TARO-2017TAR00909

PATIENT
  Sex: Female

DRUGS (1)
  1. HYDROCORTISONE 1% W/ACETIC ACID 2% OTIC SOLUTION USP [Suspect]
     Active Substance: HYDROCORTISONE

REACTIONS (6)
  - Application site scab [Not Recovered/Not Resolved]
  - Eye irritation [Not Recovered/Not Resolved]
  - Dyspnoea [Not Recovered/Not Resolved]
  - Scab [Not Recovered/Not Resolved]
  - Oropharyngeal pain [Not Recovered/Not Resolved]
  - Condition aggravated [Not Recovered/Not Resolved]
